FAERS Safety Report 18773964 (Version 2)
Quarter: 2021Q1

REPORT INFORMATION
  Report Type: Spontaneous
  Country: CL (occurrence: CL)
  Receive Date: 20210122
  Receipt Date: 20210203
  Transmission Date: 20210419
  Serious: No
  Sender: FDA-Public Use
  Company Number: CL-AMGEN-CHLSP2021009701

PATIENT
  Age: 55 Year
  Sex: Female
  Weight: 68 kg

DRUGS (5)
  1. CELEBRA [Concomitant]
     Active Substance: CELECOXIB
     Dosage: UNK
  2. FOLIC ACID. [Concomitant]
     Active Substance: FOLIC ACID
     Dosage: UNK
  3. OMEPRAZOLE. [Concomitant]
     Active Substance: OMEPRAZOLE
     Dosage: UNK
  4. ENBREL [Suspect]
     Active Substance: ETANERCEPT
     Indication: RHEUMATOID ARTHRITIS
     Dosage: 50 MILLIGRAM
     Route: 065
     Dates: start: 20191014, end: 202012
  5. PREDNISONE. [Concomitant]
     Active Substance: PREDNISONE
     Dosage: UNK

REACTIONS (3)
  - Limb injury [Unknown]
  - Pain in extremity [Unknown]
  - Headache [Unknown]
